FAERS Safety Report 21210108 (Version 1)
Quarter: 2022Q3

REPORT INFORMATION
  Report Type: Other
  Country: US (occurrence: None)
  Receive Date: 20220814
  Receipt Date: 20220814
  Transmission Date: 20221026
  Serious: Yes (Death)
  Sender: FDA-Public Use
  Company Number: US-ROCHE-3158973

PATIENT
  Age: 51 Year
  Sex: Female
  Weight: 100.79 kg

DRUGS (16)
  1. OCREVUS [Suspect]
     Active Substance: OCRELIZUMAB
     Indication: Relapsing multiple sclerosis
     Dosage: 300 MG DAY 1 AND DAY 15, 600 MG EVERY 6 MTHS
     Route: 042
  2. OCREVUS [Suspect]
     Active Substance: OCRELIZUMAB
     Indication: Secondary progressive multiple sclerosis
  3. CYCLOBENZAPRINE [Concomitant]
     Active Substance: CYCLOBENZAPRINE
  4. GABAPENTIN [Concomitant]
     Active Substance: GABAPENTIN
  5. LEVOTHYROXINE [Concomitant]
     Active Substance: LEVOTHYROXINE
  6. MELOXICAM [Concomitant]
     Active Substance: MELOXICAM
  7. MIRALAX [Concomitant]
     Active Substance: POLYETHYLENE GLYCOL 3350
  8. SUMATRIPTAN [Concomitant]
     Active Substance: SUMATRIPTAN
  9. TRAZODONE [Concomitant]
     Active Substance: TRAZODONE HYDROCHLORIDE
  10. OXYCODONE [Concomitant]
     Active Substance: OXYCODONE
  11. UBRELVY [Concomitant]
     Active Substance: UBROGEPANT
  12. AJOVY [Concomitant]
     Active Substance: FREMANEZUMAB-VFRM
  13. DOCUSATE SODIUM [Concomitant]
     Active Substance: DOCUSATE SODIUM
  14. TIZANIDINE [Concomitant]
     Active Substance: TIZANIDINE
  15. BIOFREEZE (UNITED STATES) [Concomitant]
  16. BACLOFEN [Concomitant]
     Active Substance: BACLOFEN

REACTIONS (1)
  - COVID-19 [Fatal]

NARRATIVE: CASE EVENT DATE: 20220628
